FAERS Safety Report 22927524 (Version 3)
Quarter: 2023Q4

REPORT INFORMATION
  Report Type: Report from Study
  Country: US (occurrence: US)
  Receive Date: 20230911
  Receipt Date: 20231011
  Transmission Date: 20240110
  Serious: Yes (Other)
  Sender: FDA-Public Use
  Company Number: US-ABBVIE-5398683

PATIENT
  Age: 66 Year
  Sex: Female
  Weight: 73 kg

DRUGS (2)
  1. HUMIRA [Suspect]
     Active Substance: ADALIMUMAB
     Indication: Uveitis
     Dosage: FORM STRENGTH WAS 40 MILLIGRAM
     Route: 058
     Dates: start: 20221018, end: 20230503
  2. HUMIRA [Suspect]
     Active Substance: ADALIMUMAB
     Indication: Ankylosing spondylitis
     Dosage: FORM STRENGTH: 40 MILLIGRAM
     Route: 058
     Dates: start: 202305

REACTIONS (5)
  - Cataract [Recovered/Resolved]
  - Cataract [Recovered/Resolved]
  - Eye inflammation [Recovering/Resolving]
  - Drug ineffective [Recovered/Resolved]
  - Eye inflammation [Recovering/Resolving]

NARRATIVE: CASE EVENT DATE: 20221018
